FAERS Safety Report 7326623-8 (Version None)
Quarter: 2011Q1

REPORT INFORMATION
  Report Type: 
  Country: None (occurrence: None)
  Receive Date: 20110218
  Receipt Date: 20110209
  Transmission Date: 20110831
  Serious: No
  Sender: FDA-Public Use
  Company Number: 2011-00051

PATIENT
  Age: 73 Year
  Sex: Male
  Weight: 90.7194 kg

DRUGS (11)
  1. GLIPIZIDE [Concomitant]
  2. FENOFIBRATE [Concomitant]
  3. CELEBREX [Concomitant]
  4. NEXIUM [Concomitant]
  5. ^DILT^ [Concomitant]
  6. WARFARIN SODIUM [Concomitant]
  7. LIPITOR [Concomitant]
  8. AVALIDE [Concomitant]
  9. METFORMIN [Concomitant]
  10. ACTOS [Concomitant]
  11. ZICAM COLD REMEDY PLUS LIQUI-LOZ [Suspect]
     Dosage: Q 3 HOURS X 6 DAYS
     Dates: start: 20110204, end: 20110209

REACTIONS (1)
  - HYPOGEUSIA [None]
